FAERS Safety Report 20527860 (Version 1)
Quarter: 2022Q1

REPORT INFORMATION
  Report Type: Spontaneous
  Country: US (occurrence: US)
  Receive Date: 20220228
  Receipt Date: 20220228
  Transmission Date: 20220423
  Serious: Yes (Hospitalization)
  Sender: FDA-Public Use
  Company Number: US-MYLANLABS-2022M1015984

PATIENT
  Age: 8 Decade
  Sex: Male

DRUGS (6)
  1. VANCOMYCIN [Interacting]
     Active Substance: VANCOMYCIN
     Indication: Arthritis infective
     Dosage: UNK
     Route: 042
  2. TOBRAMYCIN [Interacting]
     Active Substance: TOBRAMYCIN
     Indication: Arthritis infective
     Dosage: 1.2 GRAM, FOUR 10CC TRAYS OF TOBRAMYCIN BEADS WERE PREPARED IN THE BACK...
     Route: 014
  3. TOBRAMYCIN [Interacting]
     Active Substance: TOBRAMYCIN
     Dosage: 3.6 GRAM,A CUSTOM FEMUR WAS HAND FASHIONED WITH ANTIBACTERIAL CEMENT WITH...
     Route: 014
  4. TOBRAMYCIN [Interacting]
     Active Substance: TOBRAMYCIN
     Dosage: 14.4 GRAM,TOBRAMYCIN 9.6G WAS USED IN THE CEMENT AND TOBRAMYCIN....
     Route: 014
  5. CEFEPIME [Concomitant]
     Active Substance: CEFEPIME HYDROCHLORIDE
     Indication: Arthritis infective
     Dosage: TREATMENT CONTINUED FOR 6 WEEKS
     Route: 042
  6. GENTAMICIN [Concomitant]
     Active Substance: GENTAMICIN
     Indication: Arthritis infective
     Dosage: 1.5 GRAM, PRE-FABRICATED LARGE REMEDY TIBIAL ANTIBACTERIAL SPACER

REACTIONS (2)
  - Acute kidney injury [Recovered/Resolved]
  - Drug interaction [Recovered/Resolved]
